FAERS Safety Report 16572605 (Version 2)
Quarter: 2019Q4

REPORT INFORMATION
  Report Type: Report from Study
  Country: US (occurrence: US)
  Receive Date: 20190715
  Receipt Date: 20191127
  Transmission Date: 20200122
  Serious: Yes (Hospitalization, Other)
  Sender: FDA-Public Use
  Company Number: US-SA-2019SA186461

PATIENT
  Age: 62 Year
  Sex: Male

DRUGS (2)
  1. SARILUMAB [Suspect]
     Active Substance: SARILUMAB
     Indication: RHEUMATOID ARTHRITIS
     Dosage: 200 MG, QOW
     Dates: start: 20190606
  2. SARILUMAB [Suspect]
     Active Substance: SARILUMAB
     Dosage: UNK
     Dates: start: 2019

REACTIONS (7)
  - Knee arthroplasty [Recovered/Resolved]
  - Injection site pruritus [Unknown]
  - Hip arthroplasty [Recovered/Resolved]
  - Arthralgia [Not Recovered/Not Resolved]
  - Injection site warmth [Unknown]
  - Injection site erythema [Unknown]
  - Injection site swelling [Unknown]

NARRATIVE: CASE EVENT DATE: 201908
